FAERS Safety Report 5606040-9 (Version None)
Quarter: 2008Q1

REPORT INFORMATION
  Report Type: 
  Country: None (occurrence: None)
  Receive Date: 20080129
  Receipt Date: 20080118
  Transmission Date: 20080703
  Serious: Yes (Hospitalization)
  Sender: FDA-Public Use
  Company Number: ES-JNJFOC-20080104407

PATIENT
  Age: 72 Year
  Sex: Female

DRUGS (3)
  1. TAVANIC [Suspect]
     Indication: NASOPHARYNGITIS
     Route: 048
  2. COZAAR [Concomitant]
     Route: 065
  3. CEFUROXIME AXETIL [Concomitant]
     Route: 065

REACTIONS (2)
  - ANAPHYLACTIC SHOCK [None]
  - BLUNTED AFFECT [None]
